FAERS Safety Report 6738042-3 (Version None)
Quarter: 2010Q2

REPORT INFORMATION
  Report Type: 
  Country: None (occurrence: None)
  Receive Date: 20100521
  Receipt Date: 20100512
  Transmission Date: 20101027
  Serious: Yes (Other)
  Sender: FDA-Public Use
  Company Number: 009723

PATIENT
  Sex: Female
  Weight: 71 kg

DRUGS (5)
  1. CERTOLIZUMAB PEGOL (CERTOLIZUMAB PEGOL) [Suspect]
     Indication: RHEUMATOID ARTHRITIS
     Dosage: (200 MG 1X/2 WEEKS SUBCUTANEOUS)
     Route: 058
     Dates: start: 20100121, end: 20100121
  2. PREDNISOLON /00016201/ [Concomitant]
  3. IBUPROFEN [Concomitant]
  4. CALCIUM CARBONATE [Concomitant]
  5. VIGANTOLETTEN /00318501/ [Concomitant]

REACTIONS (3)
  - EPISTAXIS [None]
  - ERYTHEMA [None]
  - HYPERTENSIVE CRISIS [None]
